FAERS Safety Report 9850576 (Version 5)
Quarter: 2014Q3

REPORT INFORMATION
  Report Type: Report from Study
  Country: IT (occurrence: IT)
  Receive Date: 20140128
  Receipt Date: 20140715
  Transmission Date: 20150326
  Serious: Yes (Death, Hospitalization)
  Sender: FDA-Public Use
  Company Number: IT-AMGEN-ITACT2014005432

PATIENT
  Age: 68 Year
  Sex: Male

DRUGS (9)
  1. PURSENNID                          /00142207/ [Concomitant]
     Active Substance: SENNOSIDES A AND B CALCIUM
     Indication: PROPHYLAXIS
     Dosage: UNK
     Route: 048
     Dates: start: 20130903
  2. CITALOPRAM [Concomitant]
     Active Substance: CITALOPRAM HYDROBROMIDE
     Indication: PROPHYLAXIS
     Dosage: UNK
     Route: 048
     Dates: start: 20130822
  3. PANITUMUMAB [Suspect]
     Active Substance: PANITUMUMAB
     Indication: BILE DUCT CANCER
     Dosage: 6 MG/KG, Q2WK
     Route: 042
     Dates: start: 20130613, end: 20140102
  4. DELTACORTENE [Concomitant]
     Active Substance: PREDNISONE
     Indication: HYPOXIA
     Dosage: UNK
     Route: 048
     Dates: start: 20130605
  5. CONTINE                            /00012201/ [Concomitant]
     Indication: ABDOMINAL PAIN
     Dosage: UNK
     Route: 048
     Dates: start: 20130822
  6. TACHIPIRINA [Concomitant]
     Active Substance: ACETAMINOPHEN
     Indication: PAIN PROPHYLAXIS
     Dosage: UNK
     Route: 048
     Dates: start: 20130605
  7. TRANSMETIL                         /00882301/ [Concomitant]
     Dosage: UNK
     Dates: start: 20131220
  8. OMEPRAZOLO ACTAVIS [Concomitant]
     Indication: GASTRIC DISORDER
     Dosage: UNK
     Route: 048
     Dates: start: 20130605
  9. LEVOPRAID                          /00314301/ [Concomitant]

REACTIONS (1)
  - Sepsis [Fatal]

NARRATIVE: CASE EVENT DATE: 20140115
